FAERS Safety Report 22063862 (Version 1)
Quarter: 2023Q1

REPORT INFORMATION
  Report Type: Spontaneous
  Country: US (occurrence: None)
  Receive Date: 20230303
  Receipt Date: 20230303
  Transmission Date: 20230418
  Serious: No
  Sender: FDA-Public Use
  Company Number: None

PATIENT
  Age: 78 Year
  Sex: Male
  Weight: 98.34 kg

DRUGS (12)
  1. ABIRATERONE [Suspect]
     Active Substance: ABIRATERONE
     Indication: Prostate cancer
     Dosage: FREQUENCY : DAILY;?
     Route: 048
  2. PREDNISONE [Suspect]
     Active Substance: PREDNISONE
  3. AMLODIPINE BESYLATE [Concomitant]
  4. CETIRIZINE [Concomitant]
  5. DOXAZOSIN MESYLATE [Concomitant]
  6. FINASTERIDE [Concomitant]
  7. METFORMIN [Concomitant]
  8. NOVOLOG [Concomitant]
  9. ONDANSETRON [Concomitant]
  10. PANTOPRAZOLE [Concomitant]
  11. SIMVASTATIN [Concomitant]
  12. VITAMIN D3 [Concomitant]

REACTIONS (1)
  - Blood iron decreased [None]
